FAERS Safety Report 10209286 (Version 1)
Quarter: 2014Q2

REPORT INFORMATION
  Report Type: Spontaneous
  Country: CL (occurrence: CL)
  Receive Date: 20140530
  Receipt Date: 20140530
  Transmission Date: 20141212
  Serious: Yes (Hospitalization, Disabling)
  Sender: FDA-Public Use
  Company Number: CL-BIOMARINAP-CL-2014-103376

PATIENT
  Sex: Female

DRUGS (1)
  1. NAGLAZYME [Suspect]
     Indication: MUCOPOLYSACCHARIDOSIS VI
     Dosage: 15 MG, QW
     Route: 041
     Dates: start: 200711

REACTIONS (5)
  - Intracranial pressure increased [Unknown]
  - Headache [Unknown]
  - Asthenia [Unknown]
  - Vomiting projectile [Unknown]
  - Malaise [Unknown]
